FAERS Safety Report 10432361 (Version 1)
Quarter: 2014Q3

REPORT INFORMATION
  Report Type: Spontaneous
  Country: US (occurrence: None)
  Receive Date: 20140904
  Receipt Date: 20140904
  Transmission Date: 20150326
  Serious: Yes (Disabling)
  Sender: FDA-Public Use
  Company Number: None

PATIENT
  Age: 33 Year
  Sex: Female
  Weight: 83.92 kg

DRUGS (1)
  1. MIRENA [Suspect]
     Active Substance: LEVONORGESTREL
     Indication: CONTRACEPTION
     Dates: start: 20081111, end: 20140903

REACTIONS (4)
  - Incorrect drug administration duration [None]
  - Dizziness [None]
  - Expired device used [None]
  - Vertigo [None]

NARRATIVE: CASE EVENT DATE: 20140903
